APPROVED DRUG PRODUCT: PRELONE
Active Ingredient: PREDNISOLONE
Strength: 15MG/5ML
Dosage Form/Route: SOLUTION;ORAL
Application: A089081 | Product #001 | TE Code: AA
Applicant: TEVA PHARMACEUTICALS USA INC
Approved: Feb 4, 1986 | RLD: No | RS: No | Type: RX